FAERS Safety Report 19487475 (Version 1)
Quarter: 2021Q3

REPORT INFORMATION
  Report Type: Spontaneous
  Country: DE (occurrence: DE)
  Receive Date: 20210702
  Receipt Date: 20210702
  Transmission Date: 20211014
  Serious: Yes (Other)
  Sender: FDA-Public Use
  Company Number: DE-SAMSUNG BIOEPIS-SB-2021-15870

PATIENT
  Sex: Female

DRUGS (2)
  1. IMRALDI [Suspect]
     Active Substance: ADALIMUMAB
     Indication: RHEUMATIC DISORDER
     Dosage: UNKNOWN
     Route: 058
  2. MTX [Concomitant]
     Active Substance: METHOTREXATE SODIUM
     Indication: RHEUMATIC DISORDER
     Dosage: UNKNOWN
     Route: 065

REACTIONS (4)
  - Stress fracture [Unknown]
  - Product use in unapproved indication [Unknown]
  - Device issue [Unknown]
  - Joint injury [Unknown]
